FAERS Safety Report 17231546 (Version 3)
Quarter: 2020Q1

REPORT INFORMATION
  Report Type: Spontaneous
  Country: US (occurrence: US)
  Receive Date: 20200103
  Receipt Date: 20200304
  Transmission Date: 20200409
  Serious: Yes (Hospitalization, Other)
  Sender: FDA-Public Use
  Company Number: US-PFIZER INC-2019561077

PATIENT
  Age: 77 Year
  Sex: Male
  Weight: 38.1 kg

DRUGS (8)
  1. IPRATROPIUM BROMIDE. [Concomitant]
     Active Substance: IPRATROPIUM BROMIDE
     Indication: DYSPNOEA
     Dosage: UNK
  2. MUCINEX [Concomitant]
     Active Substance: GUAIFENESIN
     Dosage: UNK
  3. SPIRIVA [Concomitant]
     Active Substance: TIOTROPIUM BROMIDE MONOHYDRATE
     Dosage: UNK, 1X/DAY
  4. VENTOLIN [GUAIFENESIN;SALBUTAMOL SULFATE] [Concomitant]
     Active Substance: ALBUTEROL\GUAIFENESIN
     Indication: RESPIRATORY DISORDER
     Dosage: UNK
  5. LORAZEPAM. [Concomitant]
     Active Substance: LORAZEPAM
     Indication: SLEEP DISORDER
     Dosage: 0.5 MG, 1X/DAY (LORAZEPAM ONCE AT BEDTIME)
  6. VFEND [Suspect]
     Active Substance: VORICONAZOLE
     Indication: PNEUMONIA FUNGAL
     Dosage: 200 MG, 2X/DAY,[1 TABLET EVERY 12 HRS]
     Route: 048
     Dates: start: 201904
  7. ALBUTEROL SULFATE. [Concomitant]
     Active Substance: ALBUTEROL SULFATE
     Indication: DYSPNOEA
     Dosage: UNK, 2X/DAY
  8. VFEND [Suspect]
     Active Substance: VORICONAZOLE
     Indication: PNEUMONIA

REACTIONS (7)
  - Visual impairment [Not Recovered/Not Resolved]
  - Hallucination [Recovered/Resolved]
  - Feeling jittery [Not Recovered/Not Resolved]
  - Hypoacusis [Not Recovered/Not Resolved]
  - Fatigue [Not Recovered/Not Resolved]
  - Constipation [Unknown]
  - Abdominal discomfort [Not Recovered/Not Resolved]

NARRATIVE: CASE EVENT DATE: 2019
